FAERS Safety Report 9152369 (Version 1)
Quarter: 2013Q1

REPORT INFORMATION
  Report Type: Spontaneous
  Country: US (occurrence: US)
  Receive Date: 20130308
  Receipt Date: 20130308
  Transmission Date: 20140127
  Serious: Yes (Other)
  Sender: FDA-Public Use
  Company Number: US-ENDO PHARMACEUTICALS INC.-OPCR20122118

PATIENT
  Age: 32 Year
  Sex: Female

DRUGS (4)
  1. OPANA ER 30MG [Suspect]
     Indication: PAIN
     Route: 048
     Dates: start: 2012
  2. OPANA ER 30MG [Suspect]
     Indication: DRUG ABUSE
  3. OXYCONTIN [Suspect]
     Indication: PAIN
     Route: 048
     Dates: start: 2012
  4. OXYCONTIN [Suspect]
     Indication: DRUG ABUSE

REACTIONS (1)
  - Drug abuse [Unknown]
